FAERS Safety Report 10065261 (Version 1)
Quarter: 2014Q1

REPORT INFORMATION
  Report Type: Spontaneous
  Country: US (occurrence: None)
  Receive Date: 20140328
  Receipt Date: 20140328
  Transmission Date: 20141002
  Serious: No
  Sender: FDA-Public Use
  Company Number: CABO-14003852

PATIENT
  Age: 65 Year
  Sex: Male

DRUGS (5)
  1. COMETRIQ [Suspect]
     Indication: THYROID CANCER
     Route: 048
     Dates: start: 20130127, end: 201401
  2. SYNTHROID (LEVOTHYROXINE SODIUM) [Concomitant]
  3. DIOVAN (VALSARTAN) [Concomitant]
  4. AMLODIPINE (AMLODIPINE) [Concomitant]
  5. ZOMETA (ZOLEDRONIC ACID) [Concomitant]

REACTIONS (2)
  - Blood pressure inadequately controlled [None]
  - Drug dose omission [None]
